FAERS Safety Report 14310106 (Version 2)
Quarter: 2018Q1

REPORT INFORMATION
  Report Type: Spontaneous
  Country: US (occurrence: US)
  Receive Date: 20171220
  Receipt Date: 20180102
  Transmission Date: 20180509
  Serious: No
  Sender: FDA-Public Use
  Company Number: US-BAYER-2017-244781

PATIENT
  Age: 33 Year
  Sex: Female
  Weight: 47.62 kg

DRUGS (1)
  1. MIRALAX [Suspect]
     Active Substance: POLYETHYLENE GLYCOL 3350
     Indication: CONSTIPATION
     Dosage: 1 DF, QD
     Route: 048
     Dates: start: 201708, end: 201708

REACTIONS (6)
  - Urticaria [Unknown]
  - Product use in unapproved indication [Unknown]
  - Drug prescribing error [Unknown]
  - Drug hypersensitivity [Unknown]
  - Rash macular [Unknown]
  - Off label use [Unknown]
